FAERS Safety Report 8441876 (Version 5)
Quarter: 2013Q3

REPORT INFORMATION
  Report Type: Report from Study
  Country: CA (occurrence: CA)
  Receive Date: 20120305
  Receipt Date: 20130822
  Transmission Date: 20140515
  Serious: Yes (Other)
  Sender: FDA-Public Use
  Company Number: PHHY2012CA018412

PATIENT
  Age: 72 Year
  Sex: Female

DRUGS (1)
  1. GILENYA [Suspect]
     Indication: RELAPSING-REMITTING MULTIPLE SCLEROSIS
     Dosage: 0.5 MG, QD
     Route: 048
     Dates: start: 20111209, end: 20120814

REACTIONS (3)
  - Cellulitis [Recovering/Resolving]
  - Oedema peripheral [Recovered/Resolved]
  - Erythema [Recovering/Resolving]
